FAERS Safety Report 24950233 (Version 1)
Quarter: 2025Q1

REPORT INFORMATION
  Report Type: Spontaneous
  Country: GB (occurrence: GB)
  Receive Date: 20250210
  Receipt Date: 20250210
  Transmission Date: 20250409
  Serious: Yes (Hospitalization)
  Sender: VERTEX
  Company Number: GB-VERTEX PHARMACEUTICALS-2025-002019

PATIENT
  Sex: Female

DRUGS (3)
  1. ELEXACAFTOR\IVACAFTOR\TEZACAFTOR [Suspect]
     Active Substance: ELEXACAFTOR\IVACAFTOR\TEZACAFTOR
     Indication: Cystic fibrosis
     Dosage: 2 TABS IN AM (75MG IVA/ 50MG TEZA / 100MG ELEXA)
     Route: 048
  2. KALYDECO [Suspect]
     Active Substance: IVACAFTOR
     Indication: Cystic fibrosis
     Dosage: EVERY EVENING
     Route: 048
  3. TOBI PODHALER [Suspect]
     Active Substance: TOBRAMYCIN
     Indication: Product used for unknown indication
     Route: 065

REACTIONS (1)
  - Aphonia [Not Recovered/Not Resolved]
